FAERS Safety Report 9713795 (Version 2)
Quarter: 2014Q2

REPORT INFORMATION
  Report Type: Spontaneous
  Country: US (occurrence: US)
  Receive Date: 20131126
  Receipt Date: 20140414
  Transmission Date: 20141212
  Serious: Yes (Other)
  Sender: FDA-Public Use
  Company Number: US-TEVA-446306USA

PATIENT
  Age: 54 Year
  Sex: Female
  Weight: 71.73 kg

DRUGS (13)
  1. FENTORA [Suspect]
     Indication: BACK PAIN
     Dosage: UP TO 4 TIMES DAILY
     Dates: start: 2009
  2. PHENERGAN [Suspect]
  3. NUBAIN [Suspect]
  4. TORADOL [Suspect]
  5. CLONAZEPAM [Concomitant]
     Indication: ANXIETY
  6. SERTRALINE [Concomitant]
     Indication: DEPRESSION
  7. TIZANIDINE [Concomitant]
     Indication: MUSCLE RELAXANT THERAPY
  8. LISINOPRIL [Concomitant]
     Indication: HYPERTENSION
  9. ZETIA [Concomitant]
     Indication: HYPERCHOLESTEROLAEMIA
  10. METHOTREXATE [Concomitant]
     Indication: RHEUMATOID ARTHRITIS
  11. PREDNISONE [Concomitant]
     Indication: RHEUMATOID ARTHRITIS
  12. DICLOFENAC [Concomitant]
     Indication: RHEUMATOID ARTHRITIS
  13. FOLIC ACID [Concomitant]
     Indication: NUTRITIONAL SUPPLEMENTATION

REACTIONS (12)
  - Convulsion [Recovered/Resolved]
  - Withdrawal syndrome [Recovered/Resolved]
  - Speech disorder [Recovered/Resolved]
  - Hypokinesia [Recovered/Resolved]
  - Chills [Recovered/Resolved]
  - Feeling hot [Recovered/Resolved]
  - Coordination abnormal [Recovered/Resolved]
  - Dyskinesia [Recovered/Resolved]
  - Muscle spasms [Recovered/Resolved]
  - Off label use [Unknown]
  - Wheelchair user [Not Recovered/Not Resolved]
  - Polyarthritis [Unknown]
